FAERS Safety Report 10748935 (Version 1)
Quarter: 2015Q1

REPORT INFORMATION
  Report Type: Spontaneous
  Country: US (occurrence: None)
  Receive Date: 20150128
  Receipt Date: 20150128
  Transmission Date: 20150721
  Serious: No
  Sender: FDA-Public Use
  Company Number: None

PATIENT
  Age: 83 Year
  Sex: Female
  Weight: 47.17 kg

DRUGS (2)
  1. NAMENDA [Suspect]
     Active Substance: MEMANTINE HYDROCHLORIDE
     Indication: MIGRAINE
     Dosage: 5 MG 1 WK 5 MF BID, 10 MG BID, TWICE DAILY, TAKEN BY MOUTH?
     Route: 048
     Dates: start: 20141206, end: 20141226
  2. NAMENDA [Suspect]
     Active Substance: MEMANTINE HYDROCHLORIDE
     Indication: OFF LABEL USE
     Dosage: 5 MG 1 WK 5 MF BID, 10 MG BID, TWICE DAILY, TAKEN BY MOUTH?
     Route: 048
     Dates: start: 20141206, end: 20141226

REACTIONS (3)
  - Migraine [None]
  - Tremor [None]
  - Gait disturbance [None]

NARRATIVE: CASE EVENT DATE: 20141223
